FAERS Safety Report 20730044 (Version 1)
Quarter: 2022Q2

REPORT INFORMATION
  Report Type: Spontaneous
  Country: US (occurrence: None)
  Receive Date: 20220419
  Receipt Date: 20220419
  Transmission Date: 20220721
  Serious: Yes (Death)
  Sender: FDA-Public Use
  Company Number: None

PATIENT
  Age: 74 Year
  Sex: Male

DRUGS (11)
  1. JULUCA [Suspect]
     Active Substance: DOLUTEGRAVIR SODIUM\RILPIVIRINE HYDROCHLORIDE
     Indication: HIV infection
     Dosage: OTHER STRENGTH : 50-25;?OTHER QUANTITY : 50/25MG;?FREQUENCY : DAILY;?
     Route: 048
     Dates: start: 20201009, end: 20220415
  2. SODIUM BICARBONATE [Concomitant]
     Active Substance: SODIUM BICARBONATE
  3. ELIQUIS [Concomitant]
     Active Substance: APIXABAN
  4. LUNESTA [Concomitant]
     Active Substance: ESZOPICLONE
  5. FENOFIBRATE [Concomitant]
     Active Substance: FENOFIBRATE
  6. FUROSEMIDE [Concomitant]
     Active Substance: FUROSEMIDE
  7. LEVOTHYROXINE [Concomitant]
     Active Substance: LEVOTHYROXINE
  8. LOKELMA [Concomitant]
     Active Substance: SODIUM ZIRCONIUM CYCLOSILICATE
  9. MYTESI [Concomitant]
     Active Substance: CROFELEMER
  10. OXYCODONE [Concomitant]
     Active Substance: OXYCODONE
  11. URSODIOL [Concomitant]
     Active Substance: URSODIOL

REACTIONS (1)
  - Prostate cancer [None]

NARRATIVE: CASE EVENT DATE: 20220415
